FAERS Safety Report 6678829-9 (Version None)
Quarter: 2010Q2

REPORT INFORMATION
  Report Type: 
  Country: None (occurrence: None)
  Receive Date: 20100413
  Receipt Date: 20100409
  Transmission Date: 20101027
  Serious: Yes (Hospitalization)
  Sender: FDA-Public Use
  Company Number: US-MYLANLABS-2010S1002200

PATIENT
  Age: 50 Year
  Sex: Male
  Weight: 95.26 kg

DRUGS (7)
  1. OXYCODONE AND ACETAMINOPHEN [Suspect]
     Indication: BACK PAIN
     Route: 048
     Dates: start: 20091101
  2. FENTANYL [Suspect]
     Indication: BACK PAIN
     Dosage: CHANGED PATCHES Q3D
     Route: 062
     Dates: start: 20100122, end: 20100203
  3. FLEXERIL [Concomitant]
     Indication: MUSCLE SPASMS
     Dosage: AS NEEDED
  4. NORTRIPTYLINE HCL [Concomitant]
  5. MEDROL [Concomitant]
     Route: 048
  6. OMEPRAZOLE [Concomitant]
  7. MIRALAX [Concomitant]
     Indication: CONSTIPATION

REACTIONS (8)
  - AGEUSIA [None]
  - CHEST DISCOMFORT [None]
  - DRY THROAT [None]
  - DYSPHAGIA [None]
  - DYSPNOEA [None]
  - PHARYNGITIS STREPTOCOCCAL [None]
  - RESPIRATORY DEPRESSION [None]
  - SWOLLEN TONGUE [None]
